FAERS Safety Report 22642037 (Version 1)
Quarter: 2023Q2

REPORT INFORMATION
  Report Type: Spontaneous
  Country: US (occurrence: US)
  Receive Date: 20230626
  Receipt Date: 20230626
  Transmission Date: 20230722
  Serious: No
  Sender: FDA-Public Use
  Company Number: US-MYLANLABS-2023M1061773

PATIENT
  Sex: Male
  Weight: 86.18 kg

DRUGS (1)
  1. ATORVASTATIN [Suspect]
     Active Substance: ATORVASTATIN
     Indication: Blood pressure abnormal
     Dosage: 40 MILLIGRAM, QD (40 MG ONCE A DAY)
     Route: 065

REACTIONS (1)
  - Off label use [Unknown]
